FAERS Safety Report 8509545-6 (Version None)
Quarter: 2012Q3

REPORT INFORMATION
  Report Type: 
  Country: None (occurrence: None)
  Receive Date: 20120713
  Receipt Date: 20120704
  Transmission Date: 20120928
  Serious: Yes (Hospitalization)
  Sender: FDA-Public Use
  Company Number: US-BRISTOL-MYERS SQUIBB COMPANY-16743130

PATIENT
  Age: 63 Year
  Sex: Male
  Weight: 109 kg

DRUGS (1)
  1. IPILIMUMAB [Suspect]
     Indication: MALIGNANT MELANOMA
     Dosage: LAST DOSE: 14-JUN-2012, INDUCTION:3MG/KG OVER 90 MIN, Q3X4WKS, MAINTANANCE:Q12WEEKS 24,36,48+60
     Route: 042
     Dates: start: 20120503

REACTIONS (2)
  - DIVERTICULITIS [None]
  - DIARRHOEA [None]
